FAERS Safety Report 17563206 (Version 2)
Quarter: 2020Q2

REPORT INFORMATION
  Report Type: Spontaneous
  Country: DE (occurrence: DE)
  Receive Date: 20200319
  Receipt Date: 20200409
  Transmission Date: 20200713
  Serious: Yes (Other)
  Sender: FDA-Public Use
  Company Number: DE-BAUSCH-BL-2020-007361

PATIENT
  Age: 51 Year
  Sex: Male

DRUGS (3)
  1. DEXAMETHASONE. [Interacting]
     Active Substance: DEXAMETHASONE
     Indication: ACUTE LYMPHOCYTIC LEUKAEMIA
     Dosage: HIGH-DOSE
     Route: 065
  2. FENOFIBRATE. [Suspect]
     Active Substance: FENOFIBRATE
     Indication: HYPERTRIGLYCERIDAEMIA
     Route: 065
  3. PEG/L-ASPARAGINASE [Interacting]
     Active Substance: PEGASPARGASE
     Indication: ACUTE LYMPHOCYTIC LEUKAEMIA
     Dosage: 1,000 IU/M2, ONE DOSE
     Route: 065

REACTIONS (3)
  - Hepatotoxicity [Recovered/Resolved]
  - Hypertriglyceridaemia [Recovered/Resolved]
  - Drug interaction [Unknown]
